FAERS Safety Report 24382773 (Version 1)
Quarter: 2024Q3

REPORT INFORMATION
  Report Type: Spontaneous
  Country: US (occurrence: None)
  Receive Date: 20240930
  Receipt Date: 20240930
  Transmission Date: 20241017
  Serious: Yes (Hospitalization)
  Sender: Public
  Company Number: None

PATIENT
  Sex: Male

DRUGS (6)
  1. CAPECITABINE [Suspect]
     Active Substance: CAPECITABINE
     Dosage: FREQ: TAKE 3 TABLETS BY MOUTH EVERY 12 HOURS ON DAYS MONDAY-FRIDAY WITH WEEKENDS OFF TAKE WITH FOOD
     Route: 048
     Dates: start: 20240301
  2. CAPECITABINE [Concomitant]
     Active Substance: CAPECITABINE
  3. DEXAMETHASWON TAB [Concomitant]
  4. OMEPRAZOLE [Concomitant]
     Active Substance: OMEPRAZOLE
  5. ONDANSENTRON [Concomitant]
  6. PROCHLORPER [Concomitant]

REACTIONS (2)
  - Cholelithiasis [None]
  - Gallbladder disorder [None]
